FAERS Safety Report 10439199 (Version 1)
Quarter: 2014Q3

REPORT INFORMATION
  Report Type: Spontaneous
  Country: US (occurrence: US)
  Receive Date: 20140908
  Receipt Date: 20140908
  Transmission Date: 20150326
  Serious: No
  Sender: FDA-Public Use
  Company Number: US-BRISTOL-MYERS SQUIBB COMPANY-21202361

PATIENT
  Sex: Male

DRUGS (2)
  1. ABILIFY [Suspect]
     Active Substance: ARIPIPRAZOLE
     Indication: DEMENTIA
     Route: 048
     Dates: start: 2008, end: 2013
  2. ABILIFY [Suspect]
     Active Substance: ARIPIPRAZOLE
     Indication: DEPRESSION
     Route: 048
     Dates: start: 2008, end: 2013

REACTIONS (5)
  - Hypertension [Unknown]
  - Pain [Recovering/Resolving]
  - Chemical injury [Recovering/Resolving]
  - Blood cholesterol increased [Unknown]
  - Gambling [Unknown]
